FAERS Safety Report 9013475 (Version 2)
Quarter: 2013Q1

REPORT INFORMATION
  Report Type: Spontaneous
  Country: US (occurrence: US)
  Receive Date: 20130114
  Receipt Date: 20130117
  Transmission Date: 20140127
  Serious: Yes (Other)
  Sender: FDA-Public Use
  Company Number: US-PFIZER INC-2013014996

PATIENT
  Age: 65 Year
  Sex: Male
  Weight: 109 kg

DRUGS (15)
  1. LYRICA [Suspect]
     Indication: FIBROMYALGIA
     Dosage: 300 MG, 2X/DAY
     Route: 048
  2. NASONEX [Concomitant]
     Dosage: 50 UG, (2 SPRAYS INTRANASALLY Q 12 HRS)
     Route: 045
  3. VENLAFAXINE [Concomitant]
     Dosage: 37.5 MG, 2X/DAY
     Route: 048
  4. ATENOLOL [Concomitant]
     Dosage: 25 MG, 1X/DAY
     Route: 048
  5. ALBUTEROL [Concomitant]
     Dosage: 90 UG, 4X/DAY (2 PUFFS INHALED 4 TIMES A DAY)
  6. PROBIOTICS [Concomitant]
     Dosage: 1 TABLET PRN, AS NEEDED
  7. ZOSTAVAX [Concomitant]
     Dosage: 0.65 ML, ONCE, AS DIRECTED
     Route: 058
  8. OXYCODONE [Concomitant]
     Dosage: 5 MG, 4X/DAY (QID, PRN)
     Route: 048
  9. VITAMIN D3 [Concomitant]
     Dosage: 400 IU, 1X/DAY (2 TAB ONCE A DAY)
     Route: 048
  10. FINASTERIDE [Concomitant]
     Dosage: 5 MG, 1X/DAY, 1 TAB
     Route: 048
  11. ASPIRIN [Concomitant]
     Dosage: 81 MG, 1X/DAY, 1 TAB
     Route: 048
  12. FLOMAX [Concomitant]
     Dosage: 0.4 MG, 1X/DAY, 1 CAP
     Route: 048
  13. POTASSIUM CHLORIDE [Concomitant]
     Dosage: 10 MEQ, (1 TAB DAILY WHEN YOU TAKE LASIX)
     Route: 048
  14. LASIX [Concomitant]
     Dosage: 20 TABLET, TAKE ONE TABLET BY MOUTH EVERY DAY
     Route: 048
  15. DOXYCYCLINE [Concomitant]
     Dosage: 100 MG, 2X/DAY
     Route: 048

REACTIONS (2)
  - Renal cancer [Unknown]
  - Transitional cell carcinoma [Unknown]
